FAERS Safety Report 7800407-6 (Version None)
Quarter: 2011Q4

REPORT INFORMATION
  Report Type: 
  Country: None (occurrence: None)
  Receive Date: 20111006
  Receipt Date: 20111003
  Transmission Date: 20120403
  Serious: Yes (Death, Other)
  Sender: FDA-Public Use
  Company Number: US-AMGEN-USASP2011046902

PATIENT
  Sex: Male

DRUGS (1)
  1. NPLATE [Suspect]
     Indication: IDIOPATHIC THROMBOCYTOPENIC PURPURA
     Dosage: UNK
     Dates: start: 20090401, end: 20110725

REACTIONS (3)
  - GASTROINTESTINAL HAEMORRHAGE [None]
  - SUDDEN DEATH [None]
  - CHRONIC LYMPHOCYTIC LEUKAEMIA [None]
